FAERS Safety Report 23175103 (Version 1)
Quarter: 2023Q4

REPORT INFORMATION
  Report Type: Report from Study
  Country: US (occurrence: US)
  Receive Date: 20231112
  Receipt Date: 20231112
  Transmission Date: 20240110
  Serious: Yes (Other)
  Sender: FDA-Public Use
  Company Number: US-JNJFOC-20231112051

PATIENT
  Age: 6 Decade
  Sex: Female

DRUGS (4)
  1. SPRAVATO [Suspect]
     Active Substance: ESKETAMINE
     Indication: Depression
     Dosage: 56 MG, 1 TOTAL DOSES
     Dates: start: 20200227, end: 20200227
  2. SPRAVATO [Suspect]
     Active Substance: ESKETAMINE
     Dosage: 84 MG, 15 TOTAL DOSES
     Dates: start: 20200303, end: 20210901
  3. SPRAVATO [Suspect]
     Active Substance: ESKETAMINE
     Dosage: 56  MG, 1 TOTAL DOSES
     Dates: start: 20221109, end: 20221109
  4. SPRAVATO [Suspect]
     Active Substance: ESKETAMINE
     Dosage: 84 MG, 25 TOTAL DOSES
     Dates: start: 20221111, end: 20230831

REACTIONS (2)
  - Pneumonia [Unknown]
  - COVID-19 [Unknown]
